FAERS Safety Report 9913248 (Version 1)
Quarter: 2014Q1

REPORT INFORMATION
  Report Type: Spontaneous
  Country: US (occurrence: None)
  Receive Date: 20140214
  Receipt Date: 20140214
  Transmission Date: 20141002
  Serious: Yes (Death)
  Sender: FDA-Public Use
  Company Number: AUR-APL-2014-01243

PATIENT
  Age: 87 Year
  Sex: Female

DRUGS (3)
  1. METROPROLOL [Suspect]
     Route: 048
  2. AMLODIPINE(AMLODIPINE) [Suspect]
  3. MIRTAZAPINE [Suspect]

REACTIONS (3)
  - Completed suicide [None]
  - Toxicity to various agents [None]
  - Exposure via ingestion [None]
